FAERS Safety Report 24680762 (Version 1)
Quarter: 2024Q4

REPORT INFORMATION
  Report Type: Spontaneous
  Country: CZ (occurrence: CZ)
  Receive Date: 20241129
  Receipt Date: 20241129
  Transmission Date: 20250114
  Serious: Yes (Death, Other)
  Sender: NOVARTIS
  Company Number: CZ-002147023-NVSC2024CZ228390

PATIENT

DRUGS (1)
  1. KYMRIAH [Suspect]
     Active Substance: TISAGENLECLEUCEL
     Indication: Acute lymphocytic leukaemia
     Dosage: UNK, ONCE/SINGLE (2.6X106 /K G (1.6- 4.5X106 /K G))
     Route: 042

REACTIONS (3)
  - Sepsis [Fatal]
  - Pneumonitis [Fatal]
  - Liver disorder [Fatal]
